FAERS Safety Report 10593388 (Version 3)
Quarter: 2015Q2

REPORT INFORMATION
  Report Type: Spontaneous
  Country: US (occurrence: US)
  Receive Date: 20141119
  Receipt Date: 20150528
  Transmission Date: 20150821
  Serious: Yes (Hospitalization, Disabling, Other)
  Sender: FDA-Public Use
  Company Number: US-009507513-1411USA006707

PATIENT
  Sex: Female

DRUGS (3)
  1. ALENDRONATE SODIUM. [Suspect]
     Active Substance: ALENDRONATE SODIUM
     Indication: OSTEOPENIA
     Dosage: 70 MG, QW
     Route: 048
     Dates: end: 2014
  2. FOSAMAX [Suspect]
     Active Substance: ALENDRONATE SODIUM
     Indication: OSTEOPOROSIS PROPHYLAXIS
     Dosage: 70 MG, QW
     Route: 048
     Dates: start: 1996, end: 201406
  3. FOSAMAX [Suspect]
     Active Substance: ALENDRONATE SODIUM
     Indication: OSTEOPENIA

REACTIONS (24)
  - Osteoarthritis [Unknown]
  - Periostitis [Not Recovered/Not Resolved]
  - Muscle strain [Unknown]
  - Limb injury [Unknown]
  - Osteoarthritis [Unknown]
  - Gastrooesophageal reflux disease [Unknown]
  - Femoral neck fracture [Unknown]
  - Haematocrit decreased [Unknown]
  - Herpes zoster [Unknown]
  - Pain in extremity [Unknown]
  - Arthralgia [Unknown]
  - Vitamin D deficiency [Unknown]
  - Tooth disorder [Unknown]
  - Pubis fracture [Recovering/Resolving]
  - Femur fracture [Unknown]
  - Inflammation [Unknown]
  - Tooth disorder [Unknown]
  - Femur fracture [Unknown]
  - Femur fracture [Unknown]
  - Muscle injury [Unknown]
  - Low turnover osteopathy [Unknown]
  - Diabetes mellitus [Unknown]
  - Hypothyroidism [Unknown]
  - Pelvic discomfort [Unknown]

NARRATIVE: CASE EVENT DATE: 1997
